FAERS Safety Report 17928359 (Version 1)
Quarter: 2020Q2

REPORT INFORMATION
  Report Type: Spontaneous
  Country: US (occurrence: US)
  Receive Date: 20200622
  Receipt Date: 20200622
  Transmission Date: 20200714
  Serious: Yes (Disabling)
  Sender: FDA-Public Use
  Company Number: None

PATIENT
  Age: 57 Year
  Sex: Female
  Weight: 74.25 kg

DRUGS (12)
  1. COD LIVER OIL [Concomitant]
     Active Substance: COD LIVER OIL
  2. VITAMIN C [Concomitant]
     Active Substance: ASCORBIC ACID
  3. OMEGA-3 FISH OIL [Concomitant]
     Active Substance: FISH OIL\OMEGA-3 FATTY ACIDS
  4. SPIRULINA [Concomitant]
     Active Substance: SPIRULINA
  5. NP THYROID [Suspect]
     Active Substance: LEVOTHYROXINE\LIOTHYRONINE
     Indication: HYPOTHYROIDISM
     Dosage: ?          QUANTITY:2 TABLET(S);?
     Route: 048
     Dates: start: 20120912
  6. COENZYME Q10 [Concomitant]
     Active Substance: UBIDECARENONE
  7. MILK THISTLE EXTRACT [Concomitant]
     Active Substance: DIETARY SUPPLEMENT\HERBALS\MILK THISTLE
  8. MULTIVITAMIN [Concomitant]
     Active Substance: VITAMINS
  9. PROGESTERONE/ESTROGEN/TESTOSTERONE/DHEA [Concomitant]
  10. VITAMIN D3 [Concomitant]
     Active Substance: CHOLECALCIFEROL
  11. VIT K2 [Concomitant]
  12. CALCIUM CITRATE [Concomitant]
     Active Substance: CALCIUM CITRATE

REACTIONS (3)
  - Myalgia [None]
  - Recalled product administered [None]
  - Product measured potency issue [None]

NARRATIVE: CASE EVENT DATE: 20200601
